FAERS Safety Report 8272398-8 (Version None)
Quarter: 2012Q2

REPORT INFORMATION
  Report Type: 
  Country: None (occurrence: None)
  Receive Date: 20120410
  Receipt Date: 20120327
  Transmission Date: 20120825
  Serious: Yes (Other)
  Sender: FDA-Public Use
  Company Number: CHPA2012US005955

PATIENT
  Sex: Male

DRUGS (1)
  1. PHENYLEPHRINE HCL [Suspect]
     Dosage: UNK, UNK
     Route: 045

REACTIONS (2)
  - DYSPNOEA [None]
  - DRUG DEPENDENCE [None]
